FAERS Safety Report 7537805-4 (Version None)
Quarter: 2011Q2

REPORT INFORMATION
  Report Type: 
  Country: None (occurrence: None)
  Receive Date: 20110603
  Receipt Date: 20110518
  Transmission Date: 20111010
  Serious: Yes (Hospitalization)
  Sender: FDA-Public Use
  Company Number: 2011MA006055

PATIENT
  Age: 66 Year
  Sex: Male

DRUGS (3)
  1. RIFAMPIN [Suspect]
     Indication: MYCOBACTERIUM ULCERANS INFECTION
     Dosage: 300 MG;BID
  2. CEPHALOZIN [Concomitant]
  3. CIPROFLOXACIN [Concomitant]

REACTIONS (3)
  - CELLULITIS [None]
  - DRUG INEFFECTIVE [None]
  - BACTERIAL INFECTION [None]
